FAERS Safety Report 21081231 (Version 1)
Quarter: 2022Q3

REPORT INFORMATION
  Report Type: Spontaneous
  Country: US (occurrence: US)
  Receive Date: 20220714
  Receipt Date: 20220714
  Transmission Date: 20221027
  Serious: Yes (Hospitalization, Other)
  Sender: FDA-Public Use
  Company Number: US-BioHaven Pharmaceuticals-2022BHV001803

PATIENT
  Age: 57 Year
  Sex: Female

DRUGS (1)
  1. NURTEC ODT [Suspect]
     Active Substance: RIMEGEPANT SULFATE
     Indication: Migraine
     Dosage: RELEASED 1 UNDER HER TONGUE (GIVEN #8 FOR A MONTH)
     Route: 060
     Dates: end: 202206

REACTIONS (1)
  - Pancreatitis acute [Not Recovered/Not Resolved]
